FAERS Safety Report 7389144-2 (Version None)
Quarter: 2011Q2

REPORT INFORMATION
  Report Type: 
  Country: None (occurrence: None)
  Receive Date: 20110401
  Receipt Date: 20110328
  Transmission Date: 20111010
  Serious: Yes (Life-Threatening, Hospitalization)
  Sender: FDA-Public Use
  Company Number: US-ROCHE-762993

PATIENT
  Sex: Male
  Weight: 66 kg

DRUGS (21)
  1. LORAZEPAM [Concomitant]
  2. PROCHLORPERAZINE [Concomitant]
  3. PANCRELIPASE [Concomitant]
  4. VALSARTAN [Concomitant]
  5. MEGESTROL ACETATE [Concomitant]
  6. ERGOCALCIFEROL [Concomitant]
  7. IRINOTECAN HCL [Suspect]
     Indication: OESOPHAGEAL CANCER METASTATIC
     Dosage: FREQUENCY: 2 WEEKS, 1 OFF
     Route: 065
     Dates: start: 20101208, end: 20110215
  8. OXYCODONE [Concomitant]
  9. SCOPOLAMINE [Concomitant]
  10. BEVACIZUMAB [Suspect]
     Indication: OESOPHAGEAL CANCER METASTATIC
     Route: 042
     Dates: start: 20101208, end: 20110208
  11. CISPLATIN [Suspect]
     Indication: OESOPHAGEAL CANCER METASTATIC
     Dosage: FREQUENCY: 2 WEEKS ON 1 OFF
     Route: 065
     Dates: start: 20101208, end: 20110215
  12. ONDANSETRON [Concomitant]
  13. ASPIRIN [Concomitant]
  14. DIPHENOXYLATE [Concomitant]
  15. ATROPINE [Concomitant]
  16. VALACYCLOVIR [Concomitant]
  17. ACYCLOVIR [Concomitant]
  18. DOCETAXEL [Suspect]
     Indication: OESOPHAGEAL CANCER METASTATIC
     Dosage: FREQUENCY: 2 WEEKS, 1 OFF
     Route: 065
     Dates: start: 20101208, end: 20110215
  19. BEVACIZUMAB [Suspect]
     Route: 042
     Dates: start: 20110308
  20. ESOMEPRAZOLE [Concomitant]
  21. TRAZODONE HCL [Concomitant]

REACTIONS (2)
  - PULMONARY EMBOLISM [None]
  - NEPHROLITHIASIS [None]
